FAERS Safety Report 5010291-4 (Version None)
Quarter: 2006Q2

REPORT INFORMATION
  Report Type: 
  Country: None (occurrence: None)
  Receive Date: 20060511
  Receipt Date: 20060427
  Transmission Date: 20061013
  Serious: Yes (Hospitalization)
  Sender: FDA-Public Use
  Company Number: 2006BH008077

PATIENT
  Age: 16 Year
  Sex: Male
  Weight: 58.7 kg

DRUGS (3)
  1. ADVATE [Suspect]
     Indication: FACTOR VIII DEFICIENCY
     Dosage: EVERY HR; IV;  944 IU
     Route: 042
     Dates: start: 20060410, end: 20060412
  2. ADVATE [Suspect]
     Indication: FACTOR VIII DEFICIENCY
     Dosage: EVERY HR; IV;  944 IU
     Route: 042
     Dates: start: 20060412
  3. TYLENOL W/ CODEINE [Concomitant]

REACTIONS (3)
  - COAGULATION FACTOR VIII LEVEL DECREASED [None]
  - PHARMACEUTICAL PRODUCT COMPLAINT [None]
  - THERAPEUTIC RESPONSE DECREASED [None]
